FAERS Safety Report 8168327-8 (Version None)
Quarter: 2012Q1

REPORT INFORMATION
  Report Type: 
  Country: None (occurrence: None)
  Receive Date: 20120227
  Receipt Date: 20120223
  Transmission Date: 20120608
  Serious: Yes (Hospitalization, Other)
  Sender: FDA-Public Use
  Company Number: US-MERCK-1109USA01508

PATIENT
  Age: 79 Year
  Sex: Female

DRUGS (13)
  1. DIOVAN [Concomitant]
     Indication: BLOOD PRESSURE
     Route: 048
     Dates: start: 19950101
  2. FOSAMAX [Suspect]
     Route: 048
     Dates: start: 20080301, end: 20100323
  3. LOPRESSOR [Concomitant]
     Indication: HYPERTENSION
     Route: 065
  4. OMEPRAZOLE [Concomitant]
     Indication: DYSPEPSIA
     Route: 048
     Dates: start: 20050101
  5. OMEGA-3 MARINE TRIGLYCERIDES [Concomitant]
     Route: 048
     Dates: start: 19900101
  6. FOSAMAX [Suspect]
     Indication: OSTEOPENIA
     Route: 048
     Dates: start: 20000101, end: 20080301
  7. MAXZIDE [Concomitant]
     Indication: DIURETIC THERAPY
     Route: 048
     Dates: start: 20000101
  8. VITAMINS (UNSPECIFIED) [Concomitant]
     Route: 048
     Dates: start: 19900101
  9. FOSAMAX [Suspect]
     Route: 048
     Dates: start: 19980409, end: 20000101
  10. FOSAMAX [Suspect]
     Route: 048
     Dates: start: 20110125
  11. CALCIUM (UNSPECIFIED) [Concomitant]
     Route: 065
     Dates: start: 19900101
  12. FOLIC ACID [Concomitant]
     Route: 048
     Dates: start: 19900101
  13. SIMVASTATIN [Concomitant]
     Indication: BLOOD CHOLESTEROL
     Route: 048
     Dates: start: 19930101

REACTIONS (106)
  - DIVERTICULUM [None]
  - COLITIS ISCHAEMIC [None]
  - TONSILLAR DISORDER [None]
  - HIP FRACTURE [None]
  - INTERVERTEBRAL DISC DEGENERATION [None]
  - CELLULITIS [None]
  - FATIGUE [None]
  - EAR DISORDER [None]
  - VENTRICULAR EXTRASYSTOLES [None]
  - TOOTH DISORDER [None]
  - UPPER RESPIRATORY TRACT INFECTION [None]
  - MALABSORPTION [None]
  - JOINT INJURY [None]
  - GINGIVAL BLEEDING [None]
  - DEHYDRATION [None]
  - ARTIFICIAL CROWN PROCEDURE [None]
  - ADVERSE EVENT [None]
  - ANGIOLIPOMA [None]
  - HIATUS HERNIA [None]
  - NEUROPATHY PERIPHERAL [None]
  - CALCINOSIS [None]
  - OSTEOARTHRITIS [None]
  - PATELLOFEMORAL PAIN SYNDROME [None]
  - HYPOTENSION [None]
  - PARAESTHESIA [None]
  - VARICOSE VEIN [None]
  - TENDONITIS [None]
  - IMMUNOSUPPRESSION [None]
  - DYSPEPSIA [None]
  - GINGIVAL SWELLING [None]
  - DRUG INTOLERANCE [None]
  - ARTERIAL STENOSIS LIMB [None]
  - ARTHRITIS [None]
  - CAROTID BRUIT [None]
  - CARPAL TUNNEL SYNDROME [None]
  - LIPOMA [None]
  - SUPRAVENTRICULAR EXTRASYSTOLES [None]
  - STITCH ABSCESS [None]
  - SPINAL COLUMN STENOSIS [None]
  - POOR QUALITY SLEEP [None]
  - ANXIETY [None]
  - HYPERTENSION [None]
  - THROMBOPHLEBITIS [None]
  - FEMUR FRACTURE [None]
  - MUSCLE SPASMS [None]
  - MENISCUS LESION [None]
  - CYST [None]
  - PNEUMONIA LEGIONELLA [None]
  - SYNCOPE [None]
  - STASIS DERMATITIS [None]
  - TOOTH FRACTURE [None]
  - MUSCLE STRAIN [None]
  - HYPERCHOLESTEROLAEMIA [None]
  - GROIN PAIN [None]
  - DRUG HYPERSENSITIVITY [None]
  - BUNION [None]
  - HAEMORRHAGIC ANAEMIA [None]
  - BRONCHITIS [None]
  - CONTUSION [None]
  - MUSCULOSKELETAL CHEST PAIN [None]
  - PSORIASIS [None]
  - PERIPHERAL VASCULAR DISORDER [None]
  - ORAL DISORDER [None]
  - BURSITIS [None]
  - VASCULAR CALCIFICATION [None]
  - URINARY TRACT INFECTION [None]
  - TONSILLAR HYPERTROPHY [None]
  - SCIATICA [None]
  - PSORIATIC ARTHROPATHY [None]
  - PRURITUS GENERALISED [None]
  - MOUTH CYST [None]
  - HEADACHE [None]
  - LEFT VENTRICULAR HYPERTROPHY [None]
  - ARTHRALGIA [None]
  - ADENOIDAL HYPERTROPHY [None]
  - HAEMATOCHEZIA [None]
  - DUPUYTREN'S CONTRACTURE [None]
  - GASTROENTERITIS [None]
  - CARDIAC DISORDER [None]
  - HUMERUS FRACTURE [None]
  - COSTOCHONDRITIS [None]
  - JOINT EFFUSION [None]
  - DRY MOUTH [None]
  - LOW TURNOVER OSTEOPATHY [None]
  - LIP BLISTER [None]
  - SUBCLAVIAN ARTERY STENOSIS [None]
  - SINUS CONGESTION [None]
  - FOREIGN BODY [None]
  - PULMONARY FUNCTION TEST ABNORMAL [None]
  - NECK PAIN [None]
  - DRUG INEFFECTIVE [None]
  - CHOLELITHIASIS [None]
  - FALL [None]
  - HAEMORRHOIDS [None]
  - BLOOD GLUCOSE INCREASED [None]
  - MACULE [None]
  - DIZZINESS [None]
  - TRIGGER FINGER [None]
  - TOOTH LOSS [None]
  - RENAL FAILURE [None]
  - RED BLOOD CELL COUNT DECREASED [None]
  - MALAISE [None]
  - INFLAMMATION [None]
  - TOOTH DEPOSIT [None]
  - BONE DISORDER [None]
  - LERICHE SYNDROME [None]
